FAERS Safety Report 4320104-1 (Version None)
Quarter: 2004Q1

REPORT INFORMATION
  Report Type: 
  Country: None (occurrence: None)
  Receive Date: 20040317
  Receipt Date: 20040304
  Transmission Date: 20041129
  Serious: Yes (Other)
  Sender: FDA-Public Use
  Company Number: 001-0981-M0002384

PATIENT
  Age: 69 Year
  Sex: Female

DRUGS (2)
  1. LIPITOR [Suspect]
     Indication: ILL-DEFINED DISORDER
  2. REZULIN [Suspect]
     Indication: ILL-DEFINED DISORDER
     Dates: end: 20000316

REACTIONS (7)
  - ABDOMINAL PAIN [None]
  - CHROMATURIA [None]
  - HEPATOMEGALY [None]
  - KNEE OPERATION [None]
  - LIVER DISORDER [None]
  - RENAL FAILURE [None]
  - VOMITING [None]
